FAERS Safety Report 8895316 (Version 1)
Quarter: 2012Q4

REPORT INFORMATION
  Report Type: 
  Country: CA (occurrence: CA)
  Receive Date: 20121108
  Receipt Date: 20121108
  Transmission Date: 20130627
  Serious: Yes (Hospitalization)
  Sender: FDA-Public Use
  Company Number: CA-ASTRAZENECA-2012SE84094

PATIENT
  Age: 91 Year
  Sex: Female

DRUGS (3)
  1. NEXIUM [Suspect]
     Route: 048
  2. CIPRALEX [Suspect]
     Route: 048
  3. COUMADIN [Concomitant]

REACTIONS (2)
  - Upper gastrointestinal haemorrhage [Unknown]
  - Drug prescribing error [Unknown]
